FAERS Safety Report 9324690 (Version 3)
Quarter: 2013Q2

REPORT INFORMATION
  Report Type: Spontaneous
  Country: JP (occurrence: JP)
  Receive Date: 20130603
  Receipt Date: 20130628
  Transmission Date: 20140414
  Serious: Yes (Hospitalization)
  Sender: FDA-Public Use
  Company Number: JP-VIIV HEALTHCARE LIMITED-B0894286A

PATIENT
  Age: 49 Year
  Sex: Male

DRUGS (5)
  1. COMBIVIR [Suspect]
     Indication: PRODUCT USED FOR UNKNOWN INDICATION
     Dosage: 1IUAX TWICE PER DAY
     Route: 048
     Dates: start: 20060809, end: 20120517
  2. KALETRA [Suspect]
     Indication: PRODUCT USED FOR UNKNOWN INDICATION
     Dosage: 2IUAX TWICE PER DAY
     Route: 048
     Dates: start: 20060809, end: 20120517
  3. RALTEGRAVIR POTASSIUM [Suspect]
     Indication: PRODUCT USED FOR UNKNOWN INDICATION
     Route: 048
  4. TENOFOVIR DISOPROXIL FUMARATE [Suspect]
     Route: 048
  5. EMTRICITABINE [Suspect]
     Route: 048

REACTIONS (9)
  - Anaemia [Recovering/Resolving]
  - Fall [Unknown]
  - Pain [Unknown]
  - Nausea [Unknown]
  - Headache [Unknown]
  - Bone marrow failure [Unknown]
  - Vitamin B12 decreased [Unknown]
  - Blood folate decreased [Unknown]
  - Insomnia [Unknown]
